FAERS Safety Report 5608579-9 (Version None)
Quarter: 2008Q1

REPORT INFORMATION
  Report Type: 
  Country: None (occurrence: None)
  Receive Date: 20080111
  Receipt Date: 20070912
  Transmission Date: 20080703
  Serious: Yes (Hospitalization)
  Sender: FDA-Public Use
  Company Number: HQWYE144713SEP07

PATIENT
  Sex: Female

DRUGS (4)
  1. PREMPRO [Suspect]
     Indication: HORMONE REPLACEMENT THERAPY
     Dosage: 0.625 MG/5 MG DAILY, ORAL
     Route: 048
     Dates: start: 20070822
  2. TOPROL-XL [Concomitant]
  3. CRESTOR [Concomitant]
  4. TRICOR (FRENOFIBRATE) [Concomitant]

REACTIONS (1)
  - PANCREATITIS [None]
